FAERS Safety Report 13371364 (Version 2)
Quarter: 2018Q1

REPORT INFORMATION
  Report Type: Spontaneous
  Country: IT (occurrence: IT)
  Receive Date: 20170324
  Receipt Date: 20180219
  Transmission Date: 20180508
  Serious: Yes (Hospitalization, Other)
  Sender: FDA-Public Use
  Company Number: IT-GLAXOSMITHKLINE-IT2017GSK040098

PATIENT
  Age: 44 Year
  Sex: Female

DRUGS (7)
  1. IMIGRAN [Suspect]
     Active Substance: SUMATRIPTAN SUCCINATE
     Indication: HEADACHE
     Dosage: 2 DF, WE
     Route: 058
     Dates: start: 20140301, end: 20170301
  2. ARTROSILENE [Suspect]
     Active Substance: KETOPROFEN
     Indication: HEADACHE
     Dosage: 2 DF, WE, 320 MG
     Route: 030
     Dates: start: 20140301, end: 20170301
  3. DICLOREUM [Suspect]
     Active Substance: DICLOFENAC SODIUM
     Indication: HEADACHE
     Dosage: 2 DF, 150 MG
     Route: 030
     Dates: start: 20140301, end: 20170301
  4. ACETAMINOPHEN AND CODEINE [Suspect]
     Active Substance: ACETAMINOPHEN\CODEINE PHOSPHATE
     Indication: HEADACHE
     Dosage: 2 DF, QD, 1 G
     Route: 048
     Dates: start: 20140301, end: 20170301
  5. LOBIVON [Concomitant]
     Active Substance: NEBIVOLOL HYDROCHLORIDE
     Dosage: 5 MG, UNK
     Route: 065
  6. MODURETIC 5-50 [Concomitant]
     Active Substance: AMILORIDE HYDROCHLORIDE\HYDROCHLOROTHIAZIDE
     Dosage: UNK
     Route: 065
  7. ANAFRANIL [Concomitant]
     Active Substance: CLOMIPRAMINE HYDROCHLORIDE
     Dosage: UNK
     Route: 065

REACTIONS (3)
  - Hypertension [Recovering/Resolving]
  - Drug abuse [Recovering/Resolving]
  - Headache [Recovering/Resolving]

NARRATIVE: CASE EVENT DATE: 20170301
